FAERS Safety Report 15366686 (Version 1)
Quarter: 2018Q3

REPORT INFORMATION
  Report Type: Spontaneous
  Country: US (occurrence: US)
  Receive Date: 20180901
  Receipt Date: 20180901
  Transmission Date: 20181010
  Serious: Yes (Hospitalization)
  Sender: FDA-Public Use
  Company Number: None

PATIENT
  Age: 76 Year
  Sex: Male
  Weight: 103 kg

DRUGS (23)
  1. DULOXETINE 60 MG [Concomitant]
     Active Substance: DULOXETINE
  2. MULTIVITAMIN [Concomitant]
     Active Substance: VITAMINS
  3. GUAIFENESIN 600 MG [Concomitant]
  4. ASCORBIC ACID 1000 MG [Concomitant]
  5. ASPIRIN. [Suspect]
     Active Substance: ASPIRIN
     Indication: CEREBROVASCULAR ACCIDENT
     Route: 048
  6. LISINOPRIL 20 MG [Concomitant]
     Active Substance: LISINOPRIL
  7. FERROUS SULFATE 325 MG [Concomitant]
  8. CALCIUM CITRATE 250 MG [Concomitant]
  9. TRIAMCINOLONE 0.025% CREAM [Concomitant]
     Active Substance: TRIAMCINOLONE ACETONIDE
  10. METOPROLOL 50 MG [Concomitant]
     Active Substance: METOPROLOL
  11. WARFARIN [Suspect]
     Active Substance: WARFARIN
     Indication: ATRIAL FIBRILLATION
     Route: 048
  12. MECLIZINE 25 MG [Concomitant]
  13. FLUOROURACIL 5% CREAM [Concomitant]
     Active Substance: FLUOROURACIL
  14. ALLOPURINOL 300 MG [Concomitant]
     Active Substance: ALLOPURINOL
  15. OMEPRAZOLE 20 MG [Concomitant]
     Active Substance: OMEPRAZOLE
  16. FUROSEMIDE 20 MG [Concomitant]
     Active Substance: FUROSEMIDE
  17. HYDRALAZINE 100 MG [Concomitant]
  18. ACETAMINOPHEN 1000 MG [Concomitant]
  19. DILTIAZEM XR 180 MG [Concomitant]
  20. SIMVASTATIN 10 MG [Concomitant]
     Active Substance: SIMVASTATIN
  21. OLMESARTAN 20 MG [Concomitant]
  22. OXYCODONE 5 MG [Concomitant]
  23. GLUCOSAMINE CHONDROITIN [Concomitant]
     Active Substance: CHONDROITIN SULFATE (BOVINE)\GLUCOSAMINE HYDROCHLORIDE

REACTIONS (4)
  - Melaena [None]
  - Dizziness [None]
  - Haemoglobin decreased [None]
  - Gastrointestinal haemorrhage [None]

NARRATIVE: CASE EVENT DATE: 20180827
